FAERS Safety Report 9565166 (Version 5)
Quarter: 2014Q1

REPORT INFORMATION
  Report Type: Report from Study
  Country: JP (occurrence: JP)
  Receive Date: 20130930
  Receipt Date: 20140227
  Transmission Date: 20141002
  Serious: Yes (Hospitalization)
  Sender: FDA-Public Use
  Company Number: JP-PFIZER INC-2013269505

PATIENT
  Age: 82 Year
  Sex: Female
  Weight: 54.9 kg

DRUGS (20)
  1. XALKORI [Suspect]
     Indication: NON-SMALL CELL LUNG CANCER
     Dosage: 250 MG, 2X/DAY
     Route: 048
     Dates: start: 20121121, end: 20121129
  2. XALKORI [Suspect]
     Dosage: 250 MG, 2X/DAY
     Route: 048
     Dates: start: 20130724, end: 20130730
  3. LASIX [Concomitant]
     Dosage: 20 MG, 2X/DAY
     Route: 048
     Dates: start: 20101125, end: 20130619
  4. LASIX [Concomitant]
     Dosage: 40 MG, 2X/DAY
     Route: 048
     Dates: start: 20130620
  5. FAMOTIDINE [Concomitant]
     Dosage: 20 MG, 1X/DAY
     Route: 048
     Dates: start: 20100809
  6. SOLANAX [Concomitant]
     Dosage: 0.4 MG, 1X/DAY
     Route: 048
     Dates: start: 20100915, end: 20130728
  7. AMLODIPINE [Concomitant]
     Dosage: 5 MG, UNK
     Route: 048
     Dates: start: 20100617
  8. MAG-LAX [Concomitant]
     Dosage: 330 MG, 3X/DAY
     Route: 048
     Dates: start: 20100916
  9. SEIBULE [Concomitant]
     Dosage: 50 MG, 3X/DAY
     Route: 048
     Dates: start: 20110120
  10. FRANDOL [Concomitant]
     Dosage: 40 MG, 1X/DAY
     Route: 062
     Dates: start: 20100621
  11. LYRICA [Concomitant]
     Dosage: 75 MG, 1X/DAY
     Route: 048
     Dates: start: 20120117
  12. MEILAX [Concomitant]
     Dosage: 1 MG, 1X/DAY
     Route: 048
     Dates: start: 20110810, end: 20130728
  13. JZOLOFT [Concomitant]
     Dosage: 25 MG, 1X/DAY
     Route: 048
     Dates: start: 20110922
  14. ALPRAZOLAM [Concomitant]
     Dosage: 0.4 MG, 1X/DAY
     Route: 048
     Dates: start: 20100915
  15. ZOLPIDEM [Concomitant]
     Dosage: 10 MG, 2X/DAY
     Route: 048
     Dates: start: 20100815
  16. PANVITAN [Concomitant]
     Dosage: 1 G, 1X/DAY
     Route: 048
     Dates: start: 20130110
  17. LOBU [Concomitant]
     Dosage: 60 MG, AS NEEDED
     Route: 048
     Dates: start: 20130725, end: 20130807
  18. ZOSYN [Concomitant]
     Dosage: 4.5 G ONCE OR THREE TIMES DAILY
     Route: 042
     Dates: start: 20130514, end: 20130517
  19. ZOSYN [Concomitant]
     Dosage: 4.5 G ONCE OR THREE TIMES DAILY
     Route: 042
     Dates: start: 20130727, end: 20130808
  20. XYLOCAINE [Concomitant]
     Dosage: 10 ML, 1X/DAY
     Dates: start: 20130725, end: 20130725

REACTIONS (1)
  - Altered state of consciousness [Recovered/Resolved]
